FAERS Safety Report 18456002 (Version 1)
Quarter: 2020Q4

REPORT INFORMATION
  Report Type: Spontaneous
  Country: JP (occurrence: JP)
  Receive Date: 20201103
  Receipt Date: 20201103
  Transmission Date: 20210114
  Serious: Yes (Hospitalization)
  Sender: FDA-Public Use
  Company Number: JP-TEVA-2020-JP-1843595

PATIENT
  Age: 85 Year
  Sex: Female

DRUGS (6)
  1. GLYCEROL [Concomitant]
     Active Substance: GLYCERIN
     Indication: BRAIN CANCER METASTATIC
  2. PREDNISOLONE. [Suspect]
     Active Substance: PREDNISOLONE
     Indication: BRAIN OEDEMA
     Dosage: 10 MILLIGRAM DAILY; STARTED PREOPERATIVELY
     Route: 065
  3. LEVETIRACETAM. [Suspect]
     Active Substance: LEVETIRACETAM
     Indication: SEIZURE PROPHYLAXIS
     Dosage: 1000 MILLIGRAM DAILY;
     Route: 065
  4. GLYCEROL [Concomitant]
     Active Substance: GLYCERIN
     Indication: METASTASES TO LUNG
     Dosage: 600 MILLIGRAM DAILY; TREATMENT TERMINATED ON DAY 23.
     Route: 065
  5. GLYCEROL [Concomitant]
     Active Substance: GLYCERIN
     Indication: METASTASES TO LUNG
     Dosage: 600 MILLIGRAM DAILY; ON DAY 27, GLYCEROL RESUMED PREOPERATIVELY
     Route: 065
  6. PREDNISOLONE. [Suspect]
     Active Substance: PREDNISOLONE
     Indication: OEDEMA

REACTIONS (4)
  - Interstitial lung disease [Recovering/Resolving]
  - Pleural effusion [Recovering/Resolving]
  - Respiratory failure [Recovering/Resolving]
  - Symptom masked [Recovering/Resolving]
